FAERS Safety Report 21501680 (Version 6)
Quarter: 2022Q4

REPORT INFORMATION
  Report Type: Report from Study
  Country: CN (occurrence: None)
  Receive Date: 20221025
  Receipt Date: 20221124
  Transmission Date: 20230113
  Serious: Yes (Hospitalization)
  Sender: FDA-Public Use
  Company Number: CN-ROCHE-3197363

PATIENT
  Age: 44 Year
  Sex: Female
  Weight: 58 kg

DRUGS (21)
  1. RITUXIMAB [Suspect]
     Active Substance: RITUXIMAB
     Indication: Diffuse large B-cell lymphoma
     Dosage: DATE OF MOST RECENT DOSE 630 MG OF RITUXIMAB PRIOR TO AE/SAE ONSET ON 08/OCT/2022
     Route: 042
     Dates: start: 20220915
  2. GEMCITABINE [Suspect]
     Active Substance: GEMCITABINE
     Indication: Diffuse large B-cell lymphoma
     Dosage: DATE OF MOST RECENT DOSE 1680 MG OF GEMCITABINE PRIOR TO AE/SAE ONSET ON 09/OCT/2022.
     Route: 042
     Dates: start: 20220916
  3. OXALIPLATIN [Suspect]
     Active Substance: OXALIPLATIN
     Indication: Diffuse large B-cell lymphoma
     Dosage: DATE OF MOST RECENT DOSE 168 MG OF OXALIPLATIN PRIOR TO AE/SAE ONSET ON 09/OCT/2022.
     Route: 042
     Dates: start: 20220916
  4. TRAMADOL HYDROCHLORIDE [Concomitant]
     Active Substance: TRAMADOL HYDROCHLORIDE
     Dosage: EXTENDED-RELEASE TABLETS
     Route: 048
     Dates: start: 20220908, end: 20220908
  5. OCTREOTIDE ACETATE [Concomitant]
     Active Substance: OCTREOTIDE ACETATE
     Route: 058
     Dates: start: 20220915, end: 20220917
  6. TROPISETRON [Concomitant]
     Active Substance: TROPISETRON
     Route: 042
     Dates: start: 20220915, end: 20220916
  7. ENOXAPARIN SODIUM [Concomitant]
     Active Substance: ENOXAPARIN SODIUM
     Route: 058
     Dates: start: 20220915, end: 20220918
  8. SODIUM CHLORIDE [Concomitant]
     Active Substance: SODIUM CHLORIDE
     Route: 042
     Dates: start: 20220916, end: 20220917
  9. SODIUM CHLORIDE [Concomitant]
     Active Substance: SODIUM CHLORIDE
     Route: 042
     Dates: start: 20221011, end: 20221011
  10. GLUTATHIONE [Concomitant]
     Active Substance: GLUTATHIONE
     Route: 042
     Dates: start: 20220916, end: 20220917
  11. MUCOPOLYSACCHARIDE POLYSULFATE [Concomitant]
     Route: 062
     Dates: start: 20220915, end: 20220918
  12. LACTULOSE [Concomitant]
     Active Substance: LACTULOSE
     Indication: Constipation
     Route: 048
     Dates: start: 20220917
  13. METOCLOPRAMIDE [Concomitant]
     Active Substance: METOCLOPRAMIDE
     Indication: Vomiting
     Route: 030
     Dates: start: 20220917, end: 20220917
  14. PEGYLATED RECOMBINANT HUMAN GRANULOCYTE STIMULATING FACTOR (UNK INGRED [Concomitant]
     Route: 048
     Dates: start: 20220918, end: 20220918
  15. REDUCED GLUTATHIONE [Concomitant]
     Route: 042
     Dates: start: 20221009, end: 20221009
  16. POTASSIUM CHLORIDE [Concomitant]
     Active Substance: POTASSIUM CHLORIDE
     Indication: Hypokalaemia
     Dosage: EXTENDED RELEASE TABLETS
     Route: 042
     Dates: start: 20221010, end: 20221017
  17. POTASSIUM CHLORIDE [Concomitant]
     Active Substance: POTASSIUM CHLORIDE
     Indication: Hyponatraemia
     Route: 048
     Dates: start: 20221010, end: 20221017
  18. TROPISETRON HYDROCHLORIDE [Concomitant]
     Active Substance: TROPISETRON HYDROCHLORIDE
     Route: 042
     Dates: start: 20221009, end: 20221009
  19. SODIUM CHLORIDE [Concomitant]
     Active Substance: SODIUM CHLORIDE
     Indication: Hyponatraemia
     Route: 042
     Dates: start: 20221010, end: 20221017
  20. SODIUM CHLORIDE [Concomitant]
     Active Substance: SODIUM CHLORIDE
     Indication: Hypokalaemia
  21. CEFOPERAZONE SODIUM\SULBACTAM SODIUM [Concomitant]
     Active Substance: CEFOPERAZONE SODIUM\SULBACTAM SODIUM
     Indication: Pyrexia
     Route: 042
     Dates: start: 20221011, end: 20221017

REACTIONS (2)
  - Jaundice cholestatic [Recovered/Resolved]
  - Pyrexia [Recovered/Resolved]

NARRATIVE: CASE EVENT DATE: 20221010
